FAERS Safety Report 5055244-5 (Version None)
Quarter: 2006Q3

REPORT INFORMATION
  Report Type: 
  Country: None (occurrence: None)
  Receive Date: 20060714
  Receipt Date: 20060703
  Transmission Date: 20061208
  Serious: Yes (Hospitalization, Other)
  Sender: FDA-Public Use
  Company Number: 2006082497

PATIENT
  Age: 37 Year
  Sex: Female

DRUGS (6)
  1. ZELDOX (IM) (ZIPRASIDONE) [Suspect]
     Indication: ABNORMAL BEHAVIOUR
     Dosage: 40 MG (40 MG, ONCE), INTRAMUSCULAR
     Route: 030
     Dates: start: 20060703, end: 20060703
  2. ZELDOX (IM) (ZIPRASIDONE) [Suspect]
     Indication: PSYCHOTIC DISORDER
     Dosage: 40 MG (40 MG, ONCE), INTRAMUSCULAR
     Route: 030
     Dates: start: 20060703, end: 20060703
  3. XANAX [Concomitant]
  4. ZYPREXA [Concomitant]
  5. DEPAKENE [Concomitant]
  6. ALL OTHER THERAPEUTIC PRODUCTS (ALL OTHER THERAPEUTIC PRODUCTS) [Concomitant]

REACTIONS (3)
  - METABOLIC ACIDOSIS [None]
  - OVERDOSE [None]
  - SEDATION [None]
